FAERS Safety Report 17387389 (Version 1)
Quarter: 2020Q1

REPORT INFORMATION
  Report Type: Spontaneous
  Country: BR (occurrence: BR)
  Receive Date: 20200206
  Receipt Date: 20200206
  Transmission Date: 20200409
  Serious: Yes (Death)
  Sender: FDA-Public Use
  Company Number: BR-INCYTE CORPORATION-2020IN001180

PATIENT

DRUGS (1)
  1. JAKAVI [Suspect]
     Active Substance: RUXOLITINIB
     Indication: CHRONIC GRAFT VERSUS HOST DISEASE
     Dosage: 10 MG, BID
     Route: 048
     Dates: start: 201810

REACTIONS (2)
  - Product use in unapproved indication [Not Recovered/Not Resolved]
  - Chronic graft versus host disease [Fatal]

NARRATIVE: CASE EVENT DATE: 201812
